FAERS Safety Report 20424159 (Version 1)
Quarter: 2022Q1

REPORT INFORMATION
  Report Type: Report from Study
  Country: AU (occurrence: AU)
  Receive Date: 20220203
  Receipt Date: 20220203
  Transmission Date: 20220423
  Serious: Yes (Death)
  Sender: FDA-Public Use
  Company Number: AU-EXELIXIS-CABO-21040892

PATIENT
  Sex: Male
  Weight: 68.2 kg

DRUGS (1)
  1. CABOMETYX [Suspect]
     Active Substance: CABOZANTINIB S-MALATE
     Indication: Osteosarcoma metastatic
     Dosage: 40 MG, QD
     Route: 048

REACTIONS (2)
  - Malignant neoplasm progression [Fatal]
  - Off label use [Unknown]
